FAERS Safety Report 8067015-6 (Version None)
Quarter: 2012Q1

REPORT INFORMATION
  Report Type: 
  Country: None (occurrence: None)
  Receive Date: 20120124
  Receipt Date: 20120113
  Transmission Date: 20120608
  Serious: Yes (Hospitalization)
  Sender: FDA-Public Use
  Company Number: JP-MERCK-1110USA04565

PATIENT
  Age: 67 Year
  Sex: Male

DRUGS (8)
  1. PLETAL [Concomitant]
     Indication: CAROTID ARTERY STENOSIS
     Route: 048
     Dates: start: 20100519, end: 20100529
  2. PEPCID RPD [Concomitant]
     Indication: GASTRITIS
     Route: 048
     Dates: start: 20100519, end: 20100529
  3. EPZICOM [Suspect]
     Indication: HIV INFECTION
     Route: 048
     Dates: start: 20100519, end: 20100529
  4. AMLODIN OD [Concomitant]
     Indication: HYPERTENSION
     Route: 048
     Dates: start: 20100519, end: 20100529
  5. ISENTRESS [Suspect]
     Indication: HIV INFECTION
     Route: 048
     Dates: start: 20100519, end: 20100529
  6. IRBESARTAN [Concomitant]
     Indication: HYPERTENSION
     Route: 048
     Dates: start: 20100519, end: 20100529
  7. ARMODAFINIL [Concomitant]
     Indication: ORAL CANDIDIASIS
     Route: 048
     Dates: start: 20100519, end: 20100529
  8. ZITHROMAX [Concomitant]
     Indication: ATYPICAL MYCOBACTERIAL INFECTION
     Route: 048
     Dates: start: 20100519, end: 20100529

REACTIONS (1)
  - IMMUNE RECONSTITUTION SYNDROME [None]
